FAERS Safety Report 6434681-8 (Version None)
Quarter: 2009Q4

REPORT INFORMATION
  Report Type: 
  Country: None (occurrence: None)
  Receive Date: 20091110
  Receipt Date: 20091102
  Transmission Date: 20100525
  Serious: Yes (Death, Hospitalization)
  Sender: FDA-Public Use
  Company Number: CA-KINGPHARMUSA00001-K200901371

PATIENT
  Age: 61 Year
  Sex: Male

DRUGS (8)
  1. KEMADRIN [Suspect]
     Indication: SALIVARY HYPERSECRETION
     Dosage: 5 MG, BID
  2. CLOZAPINE [Suspect]
     Indication: SCHIZOPHRENIA
     Dosage: 300 MG, BID
  3. OXYBUTYNIN CHLORIDE [Suspect]
     Indication: SALIVARY HYPERSECRETION
     Dosage: 5 MG, BID
  4. LAMOTRIGINE [Concomitant]
     Dosage: 100 MG, BID
  5. FLURAZEPAM [Concomitant]
     Dosage: 15 MG, QHS
  6. PSYLLIUM [Concomitant]
     Indication: CONSTIPATION
  7. DOCUSATE SODIUM [Concomitant]
     Indication: CONSTIPATION
  8. GLYCERIN [Concomitant]
     Indication: CONSTIPATION
     Route: 054

REACTIONS (11)
  - ABDOMINAL DISTENSION [None]
  - ABDOMINAL PAIN [None]
  - ABDOMINAL RIGIDITY [None]
  - CONSTIPATION [None]
  - FAECAL VOMITING [None]
  - FAECALOMA [None]
  - GASTROINTESTINAL SOUNDS ABNORMAL [None]
  - INTESTINAL OBSTRUCTION [None]
  - PNEUMONIA ASPIRATION [None]
  - PYREXIA [None]
  - SEPSIS [None]
